FAERS Safety Report 7648878-2 (Version None)
Quarter: 2011Q3

REPORT INFORMATION
  Report Type: 
  Country: None (occurrence: None)
  Receive Date: 20110801
  Receipt Date: 20110728
  Transmission Date: 20111222
  Serious: Yes (Death, Other)
  Sender: FDA-Public Use
  Company Number: PHHY2011FR68084

PATIENT
  Sex: Male

DRUGS (6)
  1. CEFTAZIDIME SODIUM [Concomitant]
     Dosage: UNK UKN, UNK
     Dates: start: 20110509, end: 20110513
  2. DEXAMETHASONE MYLAN [Suspect]
     Dosage: 4 MG, UNK
     Route: 065
     Dates: start: 20110428, end: 20110502
  3. CERUBIDINE [Suspect]
     Indication: ACUTE MYELOID LEUKAEMIA
     Dosage: 100 MG, UNK
     Route: 065
     Dates: start: 20110429, end: 20110430
  4. MICAFUNGIN [Concomitant]
     Dosage: UNK UKN, UNK
     Dates: start: 20110514, end: 20110524
  5. CYTARABINE [Suspect]
     Indication: ACUTE MYELOID LEUKAEMIA
     Dosage: 4 G, UNK
     Route: 041
     Dates: start: 20110428, end: 20110502
  6. FLUDARABINE PHOSPHATE [Suspect]
     Indication: ACUTE MYELOID LEUKAEMIA
     Dosage: UNK UKN, UNK
     Route: 041
     Dates: start: 20110428, end: 20110502

REACTIONS (7)
  - ANURIA [None]
  - SEPTIC SHOCK [None]
  - RESPIRATORY FAILURE [None]
  - CHOLESTASIS [None]
  - OLIGURIA [None]
  - RENAL FAILURE ACUTE [None]
  - PSEUDOMONAS INFECTION [None]
